FAERS Safety Report 7187569-1 (Version None)
Quarter: 2010Q4

REPORT INFORMATION
  Report Type: 
  Country: None (occurrence: None)
  Receive Date: 20101222
  Receipt Date: 20100701
  Transmission Date: 20110411
  Serious: No
  Sender: FDA-Public Use
  Company Number: US-AMGEN-TCS421950

PATIENT

DRUGS (3)
  1. ENBREL [Suspect]
     Indication: RHEUMATOID ARTHRITIS
     Dosage: 50 MG, QWK
     Route: 058
     Dates: start: 20100422
  2. PREDNISONE [Concomitant]
     Dosage: 10 MG, QD
  3. UNSPECIFIED MEDICATION [Concomitant]
     Dosage: UNK UNK, UNK
     Dates: end: 20100501

REACTIONS (8)
  - DECREASED APPETITE [None]
  - HEADACHE [None]
  - LABILE BLOOD PRESSURE [None]
  - NAUSEA [None]
  - NIGHT SWEATS [None]
  - POOR QUALITY SLEEP [None]
  - PYREXIA [None]
  - RASH [None]
